FAERS Safety Report 8997178 (Version 1)
Quarter: 2013Q1

REPORT INFORMATION
  Report Type: Spontaneous
  Country: GB (occurrence: GB)
  Receive Date: 20130104
  Receipt Date: 20130104
  Transmission Date: 20140127
  Serious: Yes (Life-Threatening, Hospitalization)
  Sender: FDA-Public Use
  Company Number: GB-ABBOTT-13P-167-1030148-00

PATIENT
  Age: 60 Year
  Sex: Male

DRUGS (6)
  1. HUMIRA [Suspect]
     Indication: CROHN^S DISEASE
     Route: 058
     Dates: start: 20120828, end: 20120828
  2. HUMIRA [Suspect]
     Route: 058
     Dates: start: 20120911, end: 20120911
  3. HUMIRA [Suspect]
     Dosage: 91 DAYS DURATION INCLUDES ALL DOSES
     Route: 058
     Dates: end: 20121127
  4. ADCAL D3 [Concomitant]
     Indication: PROPHYLAXIS
  5. ADCAL D3 [Concomitant]
     Indication: BONE DISORDER
  6. PREDNISOLONE [Concomitant]
     Indication: PRODUCT USED FOR UNKNOWN INDICATION

REACTIONS (6)
  - Atrioventricular block complete [Recovering/Resolving]
  - Myocardial infarction [Recovering/Resolving]
  - Dyspnoea [Recovering/Resolving]
  - Chest pain [Recovering/Resolving]
  - Nausea [Recovering/Resolving]
  - Heart rate decreased [Recovering/Resolving]
